FAERS Safety Report 18419505 (Version 1)
Quarter: 2020Q4

REPORT INFORMATION
  Report Type: Report from Study
  Country: None (occurrence: CA)
  Receive Date: 20201023
  Receipt Date: 20201023
  Transmission Date: 20210114
  Serious: Yes (Hospitalization, Other)
  Sender: FDA-Public Use
  Company Number: CA-ABBVIE-20K-028-3617447-00

PATIENT
  Sex: Male

DRUGS (2)
  1. HUMIRA [Suspect]
     Active Substance: ADALIMUMAB
     Route: 058
  2. HUMIRA [Suspect]
     Active Substance: ADALIMUMAB
     Indication: PRODUCT USED FOR UNKNOWN INDICATION
     Route: 058

REACTIONS (7)
  - Headache [Not Recovered/Not Resolved]
  - Gastric perforation [Unknown]
  - Gastrectomy [Unknown]
  - Splenectomy [Unknown]
  - Pancreatectomy [Unknown]
  - Gastric infection [Unknown]
  - Adverse drug reaction [Unknown]
